FAERS Safety Report 13895731 (Version 1)
Quarter: 2017Q3

REPORT INFORMATION
  Report Type: Spontaneous
  Country: US (occurrence: US)
  Receive Date: 20170820
  Receipt Date: 20170820
  Transmission Date: 20171127
  Serious: Yes (Disabling)
  Sender: FDA-Public Use
  Company Number: None

PATIENT
  Sex: Female
  Weight: 87.75 kg

DRUGS (2)
  1. NEURONTIN [Suspect]
     Active Substance: GABAPENTIN
     Indication: PAIN IN EXTREMITY
     Dosage: ?          QUANTITY:1 CAPSULE(S);?
     Route: 048
     Dates: start: 20170502, end: 20170713
  2. MAGNESIUM CITRATE. [Concomitant]
     Active Substance: MAGNESIUM CITRATE

REACTIONS (8)
  - Palpitations [None]
  - Abdominal pain upper [None]
  - Tremor [None]
  - Anxiety [None]
  - Malaise [None]
  - Therapy change [None]
  - Night sweats [None]
  - Withdrawal syndrome [None]

NARRATIVE: CASE EVENT DATE: 20170625
